FAERS Safety Report 14470025 (Version 1)
Quarter: 2018Q1

REPORT INFORMATION
  Report Type: Other
  Country: US (occurrence: US)
  Receive Date: 20180131
  Receipt Date: 20180131
  Transmission Date: 20180509
  Serious: No
  Sender: FDA-Public Use
  Company Number: US-ACORDA-ACO_142100_2017

PATIENT
  Sex: Female
  Weight: 56.24 kg

DRUGS (2)
  1. TECFIDERA [Concomitant]
     Active Substance: DIMETHYL FUMARATE
     Indication: PRODUCT USED FOR UNKNOWN INDICATION
     Dosage: UNK
     Route: 065
  2. AMPYRA [Suspect]
     Active Substance: DALFAMPRIDINE
     Indication: GAIT DISTURBANCE
     Dosage: 10 MG, UNK
     Route: 048
     Dates: start: 201705

REACTIONS (4)
  - Gait disturbance [Not Recovered/Not Resolved]
  - Fall [Not Recovered/Not Resolved]
  - Condition aggravated [Not Recovered/Not Resolved]
  - Therapy cessation [Not Recovered/Not Resolved]
